FAERS Safety Report 8514371-8 (Version None)
Quarter: 2012Q3

REPORT INFORMATION
  Report Type: 
  Country: None (occurrence: None)
  Receive Date: 20120717
  Receipt Date: 20120711
  Transmission Date: 20120928
  Serious: Yes (Hospitalization, Other)
  Sender: FDA-Public Use
  Company Number: US-JNJFOC-20060906186

PATIENT
  Sex: Female
  Weight: 94.12 kg

DRUGS (3)
  1. RISPERDAL [Suspect]
     Indication: DEPRESSION
     Route: 048
     Dates: start: 19981101
  2. RISPERDAL [Suspect]
     Indication: DEPENDENT PERSONALITY DISORDER
     Route: 048
     Dates: start: 19981101
  3. RISPERDAL [Suspect]
     Indication: BIPOLAR DISORDER
     Route: 048
     Dates: start: 19981101

REACTIONS (3)
  - TYPE 1 DIABETES MELLITUS [None]
  - WEIGHT INCREASED [None]
  - TARDIVE DYSKINESIA [None]
